FAERS Safety Report 7347752-9 (Version None)
Quarter: 2011Q1

REPORT INFORMATION
  Report Type: 
  Country: None (occurrence: None)
  Receive Date: 20110311
  Receipt Date: 20110308
  Transmission Date: 20110831
  Serious: Yes (Death, Hospitalization, Other)
  Sender: FDA-Public Use
  Company Number: US-AMGEN LTD.-QUU437009

PATIENT
  Age: 94 Year
  Sex: Male

DRUGS (23)
  1. NEPHRO-VITE [Concomitant]
     Dosage: UNK UNK, UNK
  2. ACETAMINOPHEN AND HYDROCODONE BITARTRATE [Concomitant]
  3. CORTICOSTEROID NOS [Concomitant]
  4. COENZYME Q10 [Concomitant]
     Dosage: 30 MG, QD
  5. PREDNISONE TAB [Concomitant]
     Dosage: 5 MG, QD
  6. SODIUM CHLORIDE [Concomitant]
  7. CYANOCOBALAMIN [Concomitant]
     Dosage: 1000 A?G, QD
  8. DOCUSATE SODIUM [Concomitant]
     Dosage: 100 MG, QD
  9. FERROUS GLUCONATE [Concomitant]
     Dosage: 324 MG, QOD
  10. FUROSEMIDE [Concomitant]
     Dosage: 80 MG, QD
  11. MIRALAX [Concomitant]
     Dosage: 17 G, QD
  12. WOOL FAT [Concomitant]
  13. NPLATE [Suspect]
     Indication: IDIOPATHIC THROMBOCYTOPENIC PURPURA
     Dosage: 1 A?G/KG, UNK
     Dates: start: 20090730, end: 20101208
  14. IPRATROPIUM BROMIDE/ALBUTEROL SULFATE [Concomitant]
  15. SENNA [Concomitant]
     Dosage: UNK UNK, UNK
  16. CLINDAMYCIN [Concomitant]
  17. GABAPEN [Concomitant]
     Dosage: 1200 MG, UNK
  18. OMEPRAZOLE [Concomitant]
     Dosage: 20 MG, QD
  19. GUAIFENESIN [Concomitant]
     Dosage: 600 MG, QOD
  20. ASCORBIC ACID [Concomitant]
     Dosage: 500 MG, QD
  21. SERTRALINE HYDROCHLORIDE [Concomitant]
     Dosage: 50 MG, QD
  22. FLUCONAZOLE [Concomitant]
     Dosage: 100 MG, QD
  23. SIMVASTATIN [Concomitant]
     Dosage: 20 MG, QD

REACTIONS (8)
  - THROMBOCYTOPENIA [None]
  - EYE INFECTION FUNGAL [None]
  - HYPOKALAEMIA [None]
  - PNEUMONIA [None]
  - HYPERLIPIDAEMIA [None]
  - NEUROPATHY PERIPHERAL [None]
  - CELLULITIS [None]
  - DIARRHOEA [None]
